FAERS Safety Report 18062678 (Version 2)
Quarter: 2020Q3

REPORT INFORMATION
  Report Type: Report from Study
  Country: BR (occurrence: BR)
  Receive Date: 20200724
  Receipt Date: 20200813
  Transmission Date: 20201103
  Serious: Yes (Other)
  Sender: FDA-Public Use
  Company Number: BR-UCBSA-2020028823

PATIENT
  Sex: Female
  Weight: 64 kg

DRUGS (5)
  1. RIVOTRIL [Concomitant]
     Active Substance: CLONAZEPAM
     Indication: INSOMNIA
     Dosage: 2 MILLIGRAM, ONCE DAILY (QD)
     Route: 048
  2. SERTRALINA [SERTRALINE] [Concomitant]
     Active Substance: SERTRALINE HYDROCHLORIDE
     Indication: DEPRESSION
     Dosage: 50 MILLIGRAM, ONCE DAILY (QD)
     Route: 048
  3. CERTOLIZUMAB PEGOL PSA [Suspect]
     Active Substance: CERTOLIZUMAB PEGOL
     Indication: PSORIATIC ARTHROPATHY
     Dosage: 400 MILLIGRAM, EV 2 WEEKS(QOW)
     Route: 058
     Dates: start: 2020
  4. CYMBI [AMPICILLIN TRIHYDRATE] [Concomitant]
     Indication: PSORIATIC ARTHROPATHY
     Dosage: 30 MILLIGRAM, ONCE DAILY (QD)
     Route: 048
  5. CLONAZEPAM. [Concomitant]
     Active Substance: CLONAZEPAM
     Indication: INSOMNIA
     Dosage: 2 MILLIGRAM
     Route: 048

REACTIONS (2)
  - Drug ineffective [Unknown]
  - Psoriasis [Not Recovered/Not Resolved]

NARRATIVE: CASE EVENT DATE: 2020
